FAERS Safety Report 8072729-8 (Version None)
Quarter: 2012Q1

REPORT INFORMATION
  Report Type: 
  Country: None (occurrence: None)
  Receive Date: 20120126
  Receipt Date: 20120118
  Transmission Date: 20120608
  Serious: Yes (Hospitalization, Other)
  Sender: FDA-Public Use
  Company Number: CHPA2012US001655

PATIENT
  Age: 66 Year
  Sex: Female

DRUGS (7)
  1. EXCEDRIN (MIGRAINE) [Suspect]
     Dosage: UNK , UNK
     Route: 048
  2. IPRATROPIUM BROMIDE [Concomitant]
     Indication: SEASONAL ALLERGY
     Route: 045
  3. EXCEDRIN (MIGRAINE) [Suspect]
     Indication: PAIN
     Dosage: UNK , UNK
     Route: 048
  4. VICODIN [Suspect]
     Indication: HERPES ZOSTER
  5. LYRICA [Concomitant]
     Indication: FIBROMYALGIA
     Route: 048
  6. SINGULAIR [Concomitant]
     Indication: SEASONAL ALLERGY
     Dosage: UNK
     Route: 048
     Dates: start: 20111101
  7. NASONEX [Concomitant]
     Indication: SEASONAL ALLERGY
     Route: 045

REACTIONS (8)
  - SLEEP DISORDER [None]
  - INTRACRANIAL ANEURYSM [None]
  - RASH [None]
  - BACK PAIN [None]
  - HERPES ZOSTER [None]
  - OFF LABEL USE [None]
  - DRUG ADMINISTRATION ERROR [None]
  - EAR DISCOMFORT [None]
